FAERS Safety Report 6140502-3 (Version None)
Quarter: 2009Q1

REPORT INFORMATION
  Report Type: 
  Country: None (occurrence: None)
  Receive Date: 20090331
  Receipt Date: 20080520
  Transmission Date: 20090719
  Serious: Yes (Hospitalization)
  Sender: FDA-Public Use
  Company Number: 2008AL005581

PATIENT
  Sex: Male
  Weight: 77.1115 kg

DRUGS (6)
  1. DIGOXIN [Suspect]
     Indication: HEART RATE ABNORMAL
     Dates: end: 20080505
  2. FUROSEMIDE [Concomitant]
  3. POTASSIUM CHLORIDE [Concomitant]
  4. PROSCAR [Concomitant]
  5. PRILOSEC [Concomitant]
  6. ALTACE [Concomitant]

REACTIONS (2)
  - DIARRHOEA [None]
  - NAUSEA [None]
